FAERS Safety Report 24871819 (Version 1)
Quarter: 2025Q1

REPORT INFORMATION
  Report Type: Spontaneous
  Country: US (occurrence: US)
  Receive Date: 20250122
  Receipt Date: 20250122
  Transmission Date: 20250409
  Serious: No
  Sender: JOHNSON AND JOHNSON
  Company Number: US-JNJFOC-20241271355

PATIENT
  Age: 37 Year
  Sex: Female
  Weight: 55 kg

DRUGS (2)
  1. LAZCLUZE [Suspect]
     Active Substance: LAZERTINIB
     Indication: Malignant respiratory tract neoplasm
     Route: 048
     Dates: start: 20241021
  2. RYBREVANT [Concomitant]
     Active Substance: AMIVANTAMAB-VMJW
     Indication: Product used for unknown indication

REACTIONS (1)
  - Rash [Not Recovered/Not Resolved]

NARRATIVE: CASE EVENT DATE: 20241210
